FAERS Safety Report 8002722-2 (Version None)
Quarter: 2011Q4

REPORT INFORMATION
  Report Type: 
  Country: None (occurrence: None)
  Receive Date: 20111220
  Receipt Date: 20111209
  Transmission Date: 20120403
  Serious: Yes (Hospitalization)
  Sender: FDA-Public Use
  Company Number: VISP-NO-1112S-0511

PATIENT
  Age: 76 Year
  Sex: Female

DRUGS (2)
  1. VISIPAQUE [Suspect]
     Indication: ARTERIOGRAM CORONARY
     Dosage: SINGLE DOSE, INTRAVENOUS
  2. METFORMIN HCL [Suspect]

REACTIONS (5)
  - RENAL FAILURE ACUTE [None]
  - CHEST PAIN [None]
  - LACTIC ACIDOSIS [None]
  - DIALYSIS [None]
  - DIARRHOEA [None]
